FAERS Safety Report 16596073 (Version 2)
Quarter: 2019Q3

REPORT INFORMATION
  Report Type: Spontaneous
  Country: US (occurrence: US)
  Receive Date: 20190719
  Receipt Date: 20190904
  Transmission Date: 20191004
  Serious: No
  Sender: FDA-Public Use
  Company Number: US-ASTRAZENECA-2019SE91160

PATIENT
  Weight: 81.6 kg

DRUGS (1)
  1. PULMICORT FLEXHALER [Suspect]
     Active Substance: BUDESONIDE
     Indication: SENSATION OF FOREIGN BODY
     Route: 055
     Dates: start: 20190618

REACTIONS (4)
  - Off label use [Not Recovered/Not Resolved]
  - Device failure [Unknown]
  - Dry throat [Not Recovered/Not Resolved]
  - Product use in unapproved indication [Not Recovered/Not Resolved]
